FAERS Safety Report 8862883 (Version 1)
Quarter: 2012Q4

REPORT INFORMATION
  Report Type: 
  Country: US (occurrence: US)
  Receive Date: 20121026
  Receipt Date: 20121026
  Transmission Date: 20130627
  Serious: Yes (Other)
  Sender: FDA-Public Use
  Company Number: US-PFIZER INC-2012264698

PATIENT
  Age: 53 Year
  Sex: Female
  Weight: 81.63 kg

DRUGS (4)
  1. CORTISONE [Suspect]
     Dosage: UNK
  2. PREDNISOLONE [Suspect]
     Dosage: UNK
  3. PLAQUENIL [Suspect]
     Dosage: UNK
  4. SYNTHROID [Concomitant]
     Indication: HYPOTHYROIDISM
     Dosage: 0.112 mg, daily

REACTIONS (2)
  - Fall [Unknown]
  - Hip fracture [Unknown]
